FAERS Safety Report 6501437-7 (Version None)
Quarter: 2009Q4

REPORT INFORMATION
  Report Type: 
  Country: None (occurrence: None)
  Receive Date: 20091216
  Receipt Date: 20091207
  Transmission Date: 20100525
  Serious: Yes (Other)
  Sender: FDA-Public Use
  Company Number: US-JNJCH-2009031724

PATIENT
  Age: 80 Year
  Sex: Female
  Weight: 72.1 kg

DRUGS (2)
  1. ROGAINE [Suspect]
     Indication: ALOPECIA
     Dosage: TEXT:1 ML TWICE DAILY
     Route: 061
  2. DIOVAN [Concomitant]
     Indication: BLOOD PRESSURE
     Dosage: TEXT:160 MG ONCE DAILY
     Route: 048

REACTIONS (4)
  - APPLICATION SITE BURN [None]
  - APPLICATION SITE ERYTHEMA [None]
  - APPLICATION SITE VESICLES [None]
  - BURNING SENSATION [None]
